FAERS Safety Report 5082349-5 (Version None)
Quarter: 2006Q3

REPORT INFORMATION
  Report Type: 
  Country: None (occurrence: None)
  Receive Date: 20060817
  Receipt Date: 20060721
  Transmission Date: 20061208
  Serious: Yes (Hospitalization)
  Sender: FDA-Public Use
  Company Number: JP-AVENTIS-200612296JP

PATIENT
  Age: 77 Year
  Sex: Male
  Weight: 63 kg

DRUGS (6)
  1. LASIX [Suspect]
     Indication: HYPERTENSION
     Route: 048
     Dates: start: 20050414, end: 20050509
  2. LASIX [Suspect]
  3. ALLOPURINOL [Suspect]
     Indication: HYPERURICAEMIA
     Route: 048
     Dates: start: 20050414, end: 20050503
  4. ADALAT [Suspect]
     Indication: HYPERTENSION
     Route: 048
     Dates: start: 20050414, end: 20050509
  5. ARTIST [Concomitant]
     Indication: HYPERTENSION
     Route: 048
     Dates: start: 20050414, end: 20050509
  6. ALDOMET [Concomitant]
     Indication: HYPERTENSION
     Route: 048
     Dates: start: 20050414, end: 20050509

REACTIONS (6)
  - LIVER DISORDER [None]
  - PANCYTOPENIA [None]
  - PYREXIA [None]
  - RASH MACULO-PAPULAR [None]
  - STEVENS-JOHNSON SYNDROME [None]
  - SYNCOPE VASOVAGAL [None]
